FAERS Safety Report 4428628-3 (Version None)
Quarter: 2004Q3

REPORT INFORMATION
  Report Type: 
  Country: None (occurrence: None)
  Receive Date: 20040818
  Receipt Date: 20030716
  Transmission Date: 20050211
  Serious: No
  Sender: FDA-Public Use
  Company Number: US-BRISTOL-MYERS SQUIBB COMPANY-12328142

PATIENT
  Age: 48 Year
  Sex: Female
  Weight: 63 kg

DRUGS (1)
  1. TEQUIN [Suspect]
     Indication: CHRONIC SINUSITIS
     Route: 048
     Dates: start: 20030709, end: 20030716

REACTIONS (5)
  - ABDOMINAL DISTENSION [None]
  - FEELING COLD [None]
  - MIGRAINE [None]
  - NAUSEA [None]
  - PARAESTHESIA [None]
